FAERS Safety Report 14772408 (Version 1)
Quarter: 2018Q2

REPORT INFORMATION
  Report Type: Report from Study
  Country: US (occurrence: US)
  Receive Date: 20180418
  Receipt Date: 20180418
  Transmission Date: 20180711
  Serious: Yes (Other)
  Sender: FDA-Public Use
  Company Number: US-AMGEN-USASL2018033363

PATIENT
  Sex: Male

DRUGS (1)
  1. REPATHA [Suspect]
     Active Substance: EVOLOCUMAB
     Indication: HYPERCHOLESTEROLAEMIA
     Dosage: 140 MG, Q2WK
     Route: 065
     Dates: start: 201708

REACTIONS (6)
  - Lethargy [Unknown]
  - Electrocardiogram abnormal [Unknown]
  - Pain in extremity [Unknown]
  - Rash [Unknown]
  - Back pain [Unknown]
  - Precancerous skin lesion [Unknown]

NARRATIVE: CASE EVENT DATE: 2018
